FAERS Safety Report 12479055 (Version 1)
Quarter: 2016Q2

REPORT INFORMATION
  Report Type: Spontaneous
  Country: US (occurrence: US)
  Receive Date: 20160620
  Receipt Date: 20160620
  Transmission Date: 20160815
  Serious: No
  Sender: FDA-Public Use
  Company Number: US-TEVA-666911ACC

PATIENT
  Sex: Female

DRUGS (1)
  1. PLAN B ONE-STEP [Suspect]
     Active Substance: LEVONORGESTREL
     Indication: POST COITAL CONTRACEPTION
     Dates: start: 20160503, end: 20160503

REACTIONS (3)
  - Muscle spasms [Unknown]
  - Menstruation delayed [Not Recovered/Not Resolved]
  - Vaginal haemorrhage [Unknown]

NARRATIVE: CASE EVENT DATE: 20160602
